FAERS Safety Report 5716388-5 (Version None)
Quarter: 2008Q2

REPORT INFORMATION
  Report Type: 
  Country: None (occurrence: None)
  Receive Date: 20080424
  Receipt Date: 20080416
  Transmission Date: 20081010
  Serious: Yes (Hospitalization, Other)
  Sender: FDA-Public Use
  Company Number: PHHY2008JP03663

PATIENT
  Age: 75 Year
  Sex: Male
  Weight: 54 kg

DRUGS (14)
  1. VOLTAREN [Suspect]
     Indication: CYSTITIS
     Dosage: 2 TABLET/ DAY
     Route: 048
     Dates: start: 20080308, end: 20080313
  2. CLARITHROMYCIN [Suspect]
     Dosage: 2 TABLET/ DAY
     Route: 048
     Dates: start: 20080308, end: 20080313
  3. ALDACTONE [Suspect]
     Dosage: 1 TABLET/ DAY
     Route: 048
  4. LASIX [Suspect]
     Dosage: 1 TABLET/ DAY
     Route: 048
  5. VEGETAMIN A [Concomitant]
     Route: 048
     Dates: start: 20071228
  6. SLOWHEIM [Concomitant]
     Indication: INSOMNIA
     Dosage: 7.5 MG
     Route: 048
     Dates: start: 20071228
  7. PANALDINE [Concomitant]
     Indication: CEREBRAL INFARCTION
     Dosage: 200 MG
     Route: 048
     Dates: start: 20071228
  8. AMARYL [Concomitant]
     Indication: DIABETES MELLITUS
     Dosage: 2 MG
     Route: 048
     Dates: start: 20071228
  9. MOBIC [Concomitant]
     Indication: NEURALGIA
     Dosage: 10 MG
     Route: 048
     Dates: start: 20071228
  10. OPALMON [Concomitant]
     Dosage: 15 MG
     Route: 048
     Dates: start: 20071228
  11. GLYSENNID [Concomitant]
     Indication: CONSTIPATION
     Dosage: 60 MG
     Route: 048
     Dates: start: 20071228
  12. DEPAS [Concomitant]
     Indication: INSOMNIA
     Dosage: 1 MG
     Route: 048
     Dates: start: 20071228
  13. POSTERISAN [Concomitant]
     Route: 061
  14. PROCTOSEDYL [Concomitant]
     Route: 061

REACTIONS (15)
  - BACTERIA URINE IDENTIFIED [None]
  - BLOOD CREATININE INCREASED [None]
  - BLOOD UREA INCREASED [None]
  - C-REACTIVE PROTEIN INCREASED [None]
  - CYSTITIS [None]
  - DECUBITUS ULCER [None]
  - DEHYDRATION [None]
  - GLUCOSE URINE [None]
  - HAEMATURIA [None]
  - INFLAMMATION [None]
  - OEDEMA [None]
  - PROTEIN URINE PRESENT [None]
  - RENAL FAILURE ACUTE [None]
  - URINE OUTPUT INCREASED [None]
  - WHITE BLOOD CELLS URINE POSITIVE [None]
